FAERS Safety Report 5532482-6 (Version None)
Quarter: 2007Q4

REPORT INFORMATION
  Report Type: 
  Country: None (occurrence: None)
  Receive Date: 20071203
  Receipt Date: 20071123
  Transmission Date: 20080405
  Serious: Yes (Other)
  Sender: FDA-Public Use
  Company Number: CH-ABBOTT-07P-151-0425949-00

PATIENT
  Age: 52 Year
  Sex: Female

DRUGS (7)
  1. DEPAKENE [Suspect]
     Indication: EPILEPSY
     Dates: end: 20070101
  2. DEPAKENE [Suspect]
     Route: 048
     Dates: start: 20070101
  3. LEVETIRACETAM [Suspect]
     Indication: DRUG USE FOR UNKNOWN INDICATION
     Route: 048
  4. CLONAZEPAM [Suspect]
     Indication: DRUG USE FOR UNKNOWN INDICATION
  5. CLOBAZAM [Concomitant]
     Indication: DRUG USE FOR UNKNOWN INDICATION
     Route: 048
  6. CLOBAZAM [Concomitant]
     Route: 048
  7. TOPIRAMATE [Concomitant]
     Indication: DRUG USE FOR UNKNOWN INDICATION
     Route: 048

REACTIONS (3)
  - DRUG EFFECT DECREASED [None]
  - EPILEPSY [None]
  - THROMBOCYTOPENIA [None]
